FAERS Safety Report 8387629-3 (Version None)
Quarter: 2012Q2

REPORT INFORMATION
  Report Type: 
  Country: None (occurrence: None)
  Receive Date: 20120525
  Receipt Date: 20120524
  Transmission Date: 20120825
  Serious: Yes (Death, Other)
  Sender: FDA-Public Use
  Company Number: PHHY2012DE044676

PATIENT
  Age: 67 Year
  Sex: Male

DRUGS (4)
  1. CYCLOSPORINE [Suspect]
     Dosage: 50 MG, QD
  2. PREDNISOLONE [Suspect]
     Dosage: 40 MG/M2/D (1-14
  3. CYCLOSPORINE [Suspect]
     Indication: IMMUNOSUPPRESSION
     Dosage: 200 MG, QD
  4. PREDNISOLONE [Suspect]
     Indication: IMMUNOSUPPRESSION
     Dosage: 05 MG, QD

REACTIONS (4)
  - EPSTEIN-BARR VIRUS INFECTION [None]
  - PLASMABLASTIC LYMPHOMA [None]
  - PLEURAL EFFUSION [None]
  - PERICARDIAL EFFUSION [None]
